FAERS Safety Report 7358869-7 (Version None)
Quarter: 2011Q1

REPORT INFORMATION
  Report Type: 
  Country: None (occurrence: None)
  Receive Date: 20110317
  Receipt Date: 20110307
  Transmission Date: 20110831
  Serious: Yes (Death, Hospitalization)
  Sender: FDA-Public Use
  Company Number: B0706471A

PATIENT
  Sex: Female

DRUGS (1)
  1. REVOLADE [Suspect]
     Indication: THROMBOCYTOPENIA
     Route: 065

REACTIONS (2)
  - JAUNDICE [None]
  - DEATH [None]
